FAERS Safety Report 5501862-7 (Version None)
Quarter: 2007Q4

REPORT INFORMATION
  Report Type: 
  Country: None (occurrence: None)
  Receive Date: 20071030
  Receipt Date: 20070823
  Transmission Date: 20080405
  Serious: No
  Sender: FDA-Public Use
  Company Number: A0657223A

PATIENT
  Age: 68 Year
  Sex: Female

DRUGS (2)
  1. SEREVENT [Suspect]
     Indication: CHRONIC OBSTRUCTIVE PULMONARY DISEASE
     Dosage: 1PUFF TWICE PER DAY
     Route: 055
     Dates: start: 20070301
  2. HORMONE REPLACEMENT [Concomitant]
     Route: 061

REACTIONS (8)
  - DIZZINESS [None]
  - ERYTHEMA [None]
  - MUSCLE SPASMS [None]
  - PALPITATIONS [None]
  - PRURITUS [None]
  - RASH ERYTHEMATOUS [None]
  - SKIN EXFOLIATION [None]
  - SKIN TIGHTNESS [None]
